FAERS Safety Report 21581882 (Version 2)
Quarter: 2023Q1

REPORT INFORMATION
  Report Type: Report from Study
  Country: US (occurrence: None)
  Receive Date: 20221111
  Receipt Date: 20230123
  Transmission Date: 20230418
  Serious: Yes (Hospitalization)
  Sender: FDA-Public Use
  Company Number: US-ROCHE-3215117

PATIENT

DRUGS (2)
  1. ATEZOLIZUMAB [Suspect]
     Active Substance: ATEZOLIZUMAB
     Indication: Plasma cell myeloma
     Dosage: DATE OF MOST RECENT DOSE OF STUDY DRUG: 28/SEP/2022
     Route: 041
     Dates: start: 20220908
  2. TALAZOPARIB [Suspect]
     Active Substance: TALAZOPARIB
     Indication: Plasma cell myeloma
     Dosage: DATE OF MOST RECENT DOSE OF STUDY DRUG: 28/SEP/2022
     Route: 048
     Dates: start: 20220908

REACTIONS (1)
  - Embolism [Recovered/Resolved]

NARRATIVE: CASE EVENT DATE: 20221014
